FAERS Safety Report 12855659 (Version 2)
Quarter: 2016Q4

REPORT INFORMATION
  Report Type: Spontaneous
  Country: US (occurrence: US)
  Receive Date: 20161017
  Receipt Date: 20161114
  Transmission Date: 20170207
  Serious: Yes (Hospitalization, Other)
  Sender: FDA-Public Use
  Company Number: US-TAIHO ONCOLOGY INC-EU-2016-02691

PATIENT
  Age: 68 Year
  Sex: Male

DRUGS (17)
  1. LEVOTHYROXINE. [Concomitant]
     Active Substance: LEVOTHYROXINE
     Dosage: NI
  2. FERROUS SULFATE. [Concomitant]
     Active Substance: FERROUS SULFATE
     Dosage: NI
  3. WARFARIN [Concomitant]
     Active Substance: WARFARIN
     Dosage: NI
  4. NEURONTIN [Concomitant]
     Active Substance: GABAPENTIN
     Dosage: NI
  5. LIPITOR [Concomitant]
     Active Substance: ATORVASTATIN CALCIUM
     Dosage: NI
  6. PROTONIX [Concomitant]
     Active Substance: PANTOPRAZOLE SODIUM
     Dosage: NI
  7. LONSURF [Suspect]
     Active Substance: TIPIRACIL HYDROCHLORIDE\TRIFLURIDINE
     Indication: COLON CANCER
     Route: 048
     Dates: start: 20160915, end: 20160927
  8. HYDROCHLOROTHIAZIDE. [Concomitant]
     Active Substance: HYDROCHLOROTHIAZIDE
     Dosage: NI
  9. FINASTERIDE. [Concomitant]
     Active Substance: FINASTERIDE
     Dosage: NI
  10. MAGNESIUM OXIDE. [Concomitant]
     Active Substance: MAGNESIUM OXIDE
     Dosage: NI
  11. ACETYLSALICYLIC ACID [Concomitant]
     Active Substance: ASPIRIN
     Dosage: NI
  12. SUCRALFATE. [Concomitant]
     Active Substance: SUCRALFATE
     Dosage: NI
  13. METOPROLOL. [Concomitant]
     Active Substance: METOPROLOL
     Dosage: NI
  14. ALLOPURINOL. [Concomitant]
     Active Substance: ALLOPURINOL
     Dosage: NI
  15. DOXAZOSIN [Concomitant]
     Active Substance: DOXAZOSIN\DOXAZOSIN MESYLATE
     Dosage: NI
  16. TOLTERODINE [Concomitant]
     Active Substance: TOLTERODINE
     Dosage: NI
  17. ATIVAN [Concomitant]
     Active Substance: LORAZEPAM
     Dosage: NI

REACTIONS (3)
  - Device related infection [Recovered/Resolved]
  - Deep vein thrombosis [Unknown]
  - Diarrhoea [Unknown]

NARRATIVE: CASE EVENT DATE: 201609
